FAERS Safety Report 4383880-8 (Version None)
Quarter: 2004Q2

REPORT INFORMATION
  Report Type: 
  Country: None (occurrence: None)
  Receive Date: 20040623
  Receipt Date: 20040623
  Transmission Date: 20050107
  Serious: Yes (Other)
  Sender: FDA-Public Use
  Company Number: None

PATIENT
  Age: 49 Year
  Sex: Male
  Weight: 136.0791 kg

DRUGS (1)
  1. OXYCODONE ER  80MG [Suspect]
     Dosage: ONE BID

REACTIONS (2)
  - NAUSEA [None]
  - RASH [None]
